FAERS Safety Report 13877202 (Version 1)
Quarter: 2017Q3

REPORT INFORMATION
  Report Type: Spontaneous
  Country: US (occurrence: US)
  Receive Date: 20170817
  Receipt Date: 20170817
  Transmission Date: 20171127
  Serious: No
  Sender: FDA-Public Use
  Company Number: US-GLAXOSMITHKLINE-US2017123299

PATIENT
  Age: 73 Year
  Sex: Female

DRUGS (2)
  1. BIOTENE ORIGINAL ORAL RINSE (SAVANNAH) MOUTH WASH [Suspect]
     Active Substance: GLYCERIN
     Indication: ORAL HERPES
     Dosage: UNK
  2. ABREVA [Suspect]
     Active Substance: DOCOSANOL
     Indication: ORAL HERPES
     Dosage: UNK

REACTIONS (9)
  - Drug ineffective [Unknown]
  - Expired product administered [Unknown]
  - Device use issue [Unknown]
  - Wrong technique in product usage process [Unknown]
  - Drug effective for unapproved indication [Unknown]
  - Therapeutic product effective for unapproved indication [Unknown]
  - Expired device used [Unknown]
  - Product use in unapproved indication [Unknown]
  - Wrong technique in device usage process [Unknown]
